FAERS Safety Report 9259224 (Version 4)
Quarter: 2014Q2

REPORT INFORMATION
  Report Type: Spontaneous
  Country: US (occurrence: US)
  Receive Date: 20130426
  Receipt Date: 20140515
  Transmission Date: 20141212
  Serious: Yes (Hospitalization, Disabling, Other)
  Sender: FDA-Public Use
  Company Number: US-009507513-1304USA014207

PATIENT
  Sex: Male
  Weight: 126.2 kg

DRUGS (7)
  1. PROPECIA [Suspect]
     Indication: ANDROGENETIC ALOPECIA
     Dosage: 1 MG, QD
     Route: 048
     Dates: start: 199905, end: 20011211
  2. PROPECIA [Suspect]
     Indication: ALOPECIA
  3. PROSCAR [Suspect]
     Indication: BENIGN PROSTATIC HYPERPLASIA
     Dosage: 5 MG, QD
     Route: 048
     Dates: start: 20020522
  4. FINASTERIDE [Suspect]
     Indication: BENIGN PROSTATIC HYPERPLASIA
     Dosage: 5 MG, QD
     Route: 048
     Dates: end: 20120413
  5. AVODART [Concomitant]
     Indication: BENIGN PROSTATIC HYPERPLASIA
     Dosage: UNK
     Dates: start: 1999, end: 2012
  6. UROXATRAL [Concomitant]
     Indication: BENIGN PROSTATIC HYPERPLASIA
     Dosage: 10 MG, QD
     Route: 048
     Dates: start: 2009
  7. FLOMAX (TAMSULOSIN HYDROCHLORIDE) [Concomitant]
     Indication: BENIGN PROSTATIC HYPERPLASIA
     Dosage: 0.4 MG, QD
     Route: 048

REACTIONS (54)
  - Cervical vertebral fracture [Not Recovered/Not Resolved]
  - Mental disorder [Unknown]
  - Deafness [Unknown]
  - Deafness [Unknown]
  - Depression [Unknown]
  - Pain [Not Recovered/Not Resolved]
  - Neuropathy peripheral [Unknown]
  - Meniere^s disease [Unknown]
  - Arthralgia [Unknown]
  - Anxiety [Unknown]
  - Attention deficit/hyperactivity disorder [Unknown]
  - Panic disorder [Unknown]
  - Affective disorder [Unknown]
  - Psychotic disorder [Unknown]
  - Neuralgia [Unknown]
  - Presyncope [Unknown]
  - Craniocerebral injury [Unknown]
  - Neck pain [Unknown]
  - Ligament sprain [Unknown]
  - Large intestine polyp [Unknown]
  - Asthenia [Unknown]
  - Mental disability [Not Recovered/Not Resolved]
  - Fibromyalgia [Unknown]
  - Occipital neuralgia [Unknown]
  - Umbilical hernia [Unknown]
  - Arthralgia [Unknown]
  - Abdominal pain [Unknown]
  - Social problem [Unknown]
  - Pain [Unknown]
  - Complex regional pain syndrome [Unknown]
  - Vertigo positional [Unknown]
  - Dermal cyst [Unknown]
  - Adverse drug reaction [Unknown]
  - Irritable bowel syndrome [Unknown]
  - Mental status changes [Unknown]
  - Gastrooesophageal reflux disease [Unknown]
  - Laceration [Unknown]
  - Limb operation [Unknown]
  - Migraine [Not Recovered/Not Resolved]
  - Thrombosis [Unknown]
  - Thrombectomy [Unknown]
  - Vertigo CNS origin [Unknown]
  - Vitamin D deficiency [Unknown]
  - Prostatitis [Unknown]
  - Vomiting [Unknown]
  - Alopecia areata [Unknown]
  - Dizziness [Unknown]
  - Dizziness [Unknown]
  - Depression [Unknown]
  - Sexual dysfunction [Not Recovered/Not Resolved]
  - Erectile dysfunction [Not Recovered/Not Resolved]
  - Breast tenderness [Unknown]
  - Gynaecomastia [Unknown]
  - Urinary retention [Unknown]
